FAERS Safety Report 6410310-4 (Version None)
Quarter: 2009Q4

REPORT INFORMATION
  Report Type: 
  Country: None (occurrence: None)
  Receive Date: 20091022
  Receipt Date: 20091013
  Transmission Date: 20100525
  Serious: Yes (Hospitalization, Other)
  Sender: FDA-Public Use
  Company Number: US-MYLANLABS-2009S1017769

PATIENT
  Age: 77 Year
  Sex: Female

DRUGS (5)
  1. MACROBID [Suspect]
     Indication: CYSTITIS
     Route: 048
  2. NITROFURANTOIN MONOHYDRATE/MACROCRYSTALS CAPSULES [Suspect]
     Indication: CYSTITIS
     Route: 048
     Dates: start: 20090901, end: 20090901
  3. NORVASC [Concomitant]
     Indication: HYPERTENSION
     Route: 048
  4. HYDROCHLOROTHIAZIDE [Concomitant]
     Indication: HYPERTENSION
     Route: 048
  5. SPIRIVA [Concomitant]
     Indication: LUNG DISORDER
     Route: 055

REACTIONS (4)
  - ASTHENIA [None]
  - CARDIAC ENZYMES INCREASED [None]
  - DYSPNOEA [None]
  - LUNG DISORDER [None]
